FAERS Safety Report 17928654 (Version 2)
Quarter: 2020Q3

REPORT INFORMATION
  Report Type: Spontaneous
  Country: US (occurrence: US)
  Receive Date: 20200623
  Receipt Date: 20200722
  Transmission Date: 20201103
  Serious: No
  Sender: FDA-Public Use
  Company Number: US-GILEAD-2020-0473636

PATIENT
  Age: 61 Year
  Sex: Female
  Weight: 93.2 kg

DRUGS (8)
  1. EPCLUSA [Suspect]
     Active Substance: SOFOSBUVIR\VELPATASVIR
     Indication: HEPATITIS C
     Dosage: 1 DOSAGE FORM
     Route: 048
     Dates: start: 20190926, end: 20191219
  2. LEVOTHYROXINE. [Concomitant]
     Active Substance: LEVOTHYROXINE
  3. LAMOTRIGINE. [Concomitant]
     Active Substance: LAMOTRIGINE
  4. CYCLOBENZAPRINE. [Concomitant]
     Active Substance: CYCLOBENZAPRINE
  5. KRILL OIL [Concomitant]
     Active Substance: DIETARY SUPPLEMENT\KRILL OIL
  6. CALCIUM;MAGNESIUM;VITAMIN D [Concomitant]
     Active Substance: DIETARY SUPPLEMENT
  7. TRAMADOL. [Concomitant]
     Active Substance: TRAMADOL
  8. OXYCODONE [Concomitant]
     Active Substance: OXYCODONE

REACTIONS (5)
  - Paraesthesia [Not Recovered/Not Resolved]
  - Palpitations [Unknown]
  - Blood immunoglobulin G increased [Not Recovered/Not Resolved]
  - Tinnitus [Not Recovered/Not Resolved]
  - Feeling hot [Not Recovered/Not Resolved]

NARRATIVE: CASE EVENT DATE: 201910
